FAERS Safety Report 16634291 (Version 1)
Quarter: 2019Q3

REPORT INFORMATION
  Report Type: Spontaneous
  Country: FR (occurrence: FR)
  Receive Date: 20190726
  Receipt Date: 20190726
  Transmission Date: 20191004
  Serious: Yes (Other)
  Sender: FDA-Public Use
  Company Number: FR-SUN PHARMACEUTICAL INDUSTRIES LTD-2019R1-214940

PATIENT
  Age: 23 Year
  Sex: Female

DRUGS (5)
  1. ZOPICLONE [Suspect]
     Active Substance: ZOPICLONE
     Indication: INSOMNIA
     Dosage: 7.5 MILLIGRAM, DAILY
     Route: 048
     Dates: start: 20190424, end: 20190509
  2. SERTRALINE [Suspect]
     Active Substance: SERTRALINE HYDROCHLORIDE
     Dosage: 100 MILLIGRAM, DAILY
     Route: 048
     Dates: start: 20190528, end: 20190531
  3. VERATRAN [Suspect]
     Active Substance: CLOTIAZEPAM
     Indication: ANXIETY
     Dosage: UNK
     Route: 048
     Dates: start: 20190417, end: 20190509
  4. SERTRALINE [Suspect]
     Active Substance: SERTRALINE HYDROCHLORIDE
     Indication: DEPRESSION
     Dosage: 50 MILLIGRAM, DAILY
     Route: 048
     Dates: start: 20190509, end: 20190527
  5. PRAZEPAM [Suspect]
     Active Substance: PRAZEPAM
     Indication: ANXIETY
     Dosage: 10 MILLIGRAM, DAILY
     Route: 048
     Dates: start: 20190509, end: 20190531

REACTIONS (1)
  - Erythema multiforme [Recovering/Resolving]

NARRATIVE: CASE EVENT DATE: 20190524
